FAERS Safety Report 5661550-3 (Version None)
Quarter: 2008Q1

REPORT INFORMATION
  Report Type: 
  Country: None (occurrence: None)
  Receive Date: 20080312
  Receipt Date: 20080304
  Transmission Date: 20080703
  Serious: Yes (Other)
  Sender: FDA-Public Use
  Company Number: CA-ROCHE-551699

PATIENT
  Age: 34 Year
  Sex: Female

DRUGS (3)
  1. NAPROSYN [Suspect]
     Indication: ANKYLOSING SPONDYLITIS
     Route: 048
     Dates: start: 20050101
  2. NAPROSYN [Suspect]
     Route: 048
     Dates: start: 20070101
  3. NAPROSYN [Suspect]
     Route: 048
     Dates: start: 20070901

REACTIONS (2)
  - ABORTION SPONTANEOUS [None]
  - DRUG EXPOSURE DURING PREGNANCY [None]
